FAERS Safety Report 7479762-5 (Version None)
Quarter: 2011Q2

REPORT INFORMATION
  Report Type: 
  Country: None (occurrence: None)
  Receive Date: 20110513
  Receipt Date: 20110503
  Transmission Date: 20111010
  Serious: Yes (Life-Threatening)
  Sender: FDA-Public Use
  Company Number: US-GENENTECH-316371

PATIENT
  Sex: Male
  Weight: 76.3 kg

DRUGS (10)
  1. XOLAIR [Suspect]
     Indication: ASTHMA
     Dosage: 300 MG, Q4W
     Route: 058
     Dates: start: 20110406, end: 20110406
  2. ACETAMINOPHEN [Concomitant]
     Indication: PRODUCT USED FOR UNKNOWN INDICATION
  3. ZYFLO [Concomitant]
     Indication: PRODUCT USED FOR UNKNOWN INDICATION
  4. PROTONIX [Concomitant]
     Indication: PRODUCT USED FOR UNKNOWN INDICATION
  5. FLOVENT [Concomitant]
     Indication: PRODUCT USED FOR UNKNOWN INDICATION
  6. CALCIUM [Concomitant]
     Indication: PRODUCT USED FOR UNKNOWN INDICATION
  7. XYZAL [Concomitant]
     Indication: PRODUCT USED FOR UNKNOWN INDICATION
  8. LUNESTA [Concomitant]
     Indication: PRODUCT USED FOR UNKNOWN INDICATION
  9. ADVAIR DISKUS 100/50 [Concomitant]
     Indication: PRODUCT USED FOR UNKNOWN INDICATION
  10. MICARDIS [Concomitant]
     Indication: PRODUCT USED FOR UNKNOWN INDICATION

REACTIONS (4)
  - URTICARIA [None]
  - ANAPHYLACTIC REACTION [None]
  - EYELIDS PRURITUS [None]
  - EYELID OEDEMA [None]
